FAERS Safety Report 17954326 (Version 5)
Quarter: 2020Q3

REPORT INFORMATION
  Report Type: Spontaneous
  Country: GB (occurrence: GB)
  Receive Date: 20200629
  Receipt Date: 20200922
  Transmission Date: 20201103
  Serious: Yes (Other)
  Sender: FDA-Public Use
  Company Number: GB-AUROBINDO-08-AUR-08515

PATIENT
  Age: 54 Year
  Sex: Male

DRUGS (83)
  1. CLEXANE [Suspect]
     Active Substance: ENOXAPARIN SODIUM
     Indication: ILL-DEFINED DISORDER
     Dosage: 20 MILLIGRAM, ONCE A DAY
     Route: 058
     Dates: start: 2006
  2. FRAGMIN [Suspect]
     Active Substance: DALTEPARIN SODIUM
     Dosage: 250 INTERNATIONAL UNIT, ONCE A DAY
     Route: 058
  3. NOREPINEPHRINE. [Suspect]
     Active Substance: NOREPINEPHRINE
     Indication: ILL-DEFINED DISORDER
     Dosage: UNK
     Route: 065
     Dates: start: 2006
  4. ROCEPHIN [Suspect]
     Active Substance: CEFTRIAXONE SODIUM
     Indication: ILL-DEFINED DISORDER
     Dosage: 2 GRAM
     Route: 042
     Dates: start: 2006
  5. SANDO K (POTASSIUM CHLORIDE) [Suspect]
     Active Substance: POTASSIUM CHLORIDE
     Dosage: 6 DOSAGE FORM, ONCE A DAY
     Route: 065
  6. TINZAPARIN SODIUM [Suspect]
     Active Substance: TINZAPARIN SODIUM
     Dosage: 3.5 MILLILITER, ONCE A DAY
     Route: 065
  7. METOCLOPRAMIDE. [Concomitant]
     Active Substance: METOCLOPRAMIDE
     Indication: ILL-DEFINED DISORDER
     Dosage: 10 MILLIGRAM
     Route: 042
  8. PARACETAMOL 500 MG SOLUBLE TABLETS (GSL) [Suspect]
     Active Substance: ACETAMINOPHEN
     Dosage: UNK
     Route: 065
  9. CALCIUM CHLORIDE. [Suspect]
     Active Substance: CALCIUM CHLORIDE
     Indication: ILL-DEFINED DISORDER
     Dosage: UNK
     Route: 005
     Dates: start: 2006
  10. CALCIUM GLUCONATE. [Suspect]
     Active Substance: CALCIUM GLUCONATE
     Indication: ILL-DEFINED DISORDER
     Dosage: 10 MILLILITER, ONCE A DAY
     Route: 042
     Dates: start: 2006
  11. FLUCONAZOLE. [Suspect]
     Active Substance: FLUCONAZOLE
     Indication: ILL-DEFINED DISORDER
     Dosage: 200 MILLIGRAM, ONCE A DAY
     Route: 042
     Dates: start: 2006
  12. FUROSEMIDE. [Suspect]
     Active Substance: FUROSEMIDE
     Indication: PRODUCT USED FOR UNKNOWN INDICATION
     Dosage: 20 MILLIGRAM, TWO TIMES A DAY
     Route: 042
     Dates: start: 2006
  13. LACTULOSE. [Suspect]
     Active Substance: LACTULOSE
     Dosage: 1 MILLILITER, ONCE A DAY
     Route: 065
  14. THIAMINE HYDROCHLORIDE. [Suspect]
     Active Substance: THIAMINE HYDROCHLORIDE
     Indication: ILL-DEFINED DISORDER
     Dosage: 100 MILLIGRAM, ONCE A DAY
     Route: 048
     Dates: start: 2006
  15. AMOXICILLIN. [Concomitant]
     Active Substance: AMOXICILLIN
     Indication: ILL-DEFINED DISORDER
     Dosage: 250 MILLIGRAM
     Route: 048
     Dates: start: 20060913
  16. ASPIRIN. [Concomitant]
     Active Substance: ASPIRIN
     Indication: ILL-DEFINED DISORDER
     Dosage: UNK
     Route: 005
  17. ASPIRIN. [Concomitant]
     Active Substance: ASPIRIN
     Dosage: UNK
     Route: 048
  18. TAZOCIN [Concomitant]
     Active Substance: PIPERACILLIN SODIUM\TAZOBACTAM SODIUM
     Dosage: 13.5 MILLIGRAM, ONCE A DAY (INCREASED TO 4 TIMES DAILY BETWEEN 04/10/2006 AND 09/10/2006)
     Route: 042
  19. PARACETAMOL 500 MG SOLUBLE TABLETS (GSL) [Suspect]
     Active Substance: ACETAMINOPHEN
     Indication: ILL-DEFINED DISORDER
     Dosage: UNK
     Route: 065
     Dates: start: 2006
  20. AQUASEPT [Suspect]
     Active Substance: TRICLOSAN
     Indication: ILL-DEFINED DISORDER
     Dosage: UNK
     Route: 065
     Dates: start: 2006
  21. DIPOTASSIUM PHOSPHATE [Suspect]
     Active Substance: POTASSIUM PHOSPHATE, DIBASIC
     Indication: PRODUCT USED FOR UNKNOWN INDICATION
     Dosage: UNK
     Route: 065
  22. FLAMAZINE [Suspect]
     Active Substance: SILVER SULFADIAZINE
     Indication: PRODUCT USED FOR UNKNOWN INDICATION
     Dosage: UNK
     Route: 061
     Dates: start: 2006
  23. NORADRENALINE [Suspect]
     Active Substance: NOREPINEPHRINE
     Indication: PRODUCT USED FOR UNKNOWN INDICATION
     Dosage: UNK UNK,UNK,
     Route: 005
     Dates: start: 2006
  24. SANDO K (POTASSIUM CHLORIDE) [Suspect]
     Active Substance: POTASSIUM CHLORIDE
     Indication: ILL-DEFINED DISORDER
     Dosage: 2 DOSAGE FORM, 3 TIMES A DAY
     Route: 061
     Dates: start: 2006
  25. TRICLOSAN. [Suspect]
     Active Substance: TRICLOSAN
     Indication: PRODUCT USED FOR UNKNOWN INDICATION
     Dosage: UNK
     Route: 065
  26. TAZOCIN [Concomitant]
     Active Substance: PIPERACILLIN SODIUM\TAZOBACTAM SODIUM
     Indication: ILL-DEFINED DISORDER
     Dosage: 4.5 GRAM, 3 TIMES A DAY
     Route: 042
  27. VANCOMYCIN [Concomitant]
     Active Substance: VANCOMYCIN
     Indication: ILL-DEFINED DISORDER
     Dosage: 1 GRAM, ONCE A DAY
     Route: 042
  28. BACTROBAN [Suspect]
     Active Substance: MUPIROCIN\MUPIROCIN CALCIUM
     Indication: ILL-DEFINED DISORDER
     Dosage: UNK
     Route: 005
     Dates: start: 2006
  29. HYDROCORTISONE SODIUM SUCCINATE [Suspect]
     Active Substance: HYDROCORTISONE SODIUM SUCCINATE
     Indication: ILL-DEFINED DISORDER
  30. LANSOPRAZOLE. [Suspect]
     Active Substance: LANSOPRAZOLE
     Indication: PRODUCT USED FOR UNKNOWN INDICATION
     Dosage: 30 MILLIGRAM
     Route: 065
     Dates: start: 2006
  31. MAGNESIUM SULFATE. [Suspect]
     Active Substance: MAGNESIUM SULFATE
     Dosage: 10ML/50% 8MMOLS/50MLS
     Route: 065
     Dates: start: 2006
  32. POTASSIUM CHLORIDE. [Suspect]
     Active Substance: POTASSIUM CHLORIDE
     Dosage: UNK, ONCE A DAY(40MMOLS/100ML INFUSION )
     Route: 065
     Dates: start: 2006
  33. PHYTOMENADIONE [Suspect]
     Active Substance: PHYTONADIONE
     Indication: ILL-DEFINED DISORDER
     Dosage: UNK
     Route: 065
     Dates: start: 2006
  34. SODIUM BICARBONATE. [Suspect]
     Active Substance: SODIUM BICARBONATE
     Indication: PRODUCT USED FOR UNKNOWN INDICATION
     Dosage: 100 MG,EVERY HOUR,
     Route: 042
     Dates: start: 2006
  35. ZOTON [Suspect]
     Active Substance: LANSOPRAZOLE
     Indication: ILL-DEFINED DISORDER
  36. ASPIRINE [Concomitant]
     Active Substance: ASPIRIN
     Indication: ILL-DEFINED DISORDER
     Dosage: UNK
     Route: 048
  37. CEFTRIAXONE. [Suspect]
     Active Substance: CEFTRIAXONE
     Indication: PRODUCT USED FOR UNKNOWN INDICATION
     Dosage: 2 GRAM
     Route: 042
  38. FRAGMIN [Suspect]
     Active Substance: DALTEPARIN SODIUM
     Indication: ILL-DEFINED DISORDER
     Dosage: 2500 INTERNATIONAL UNIT, DAILY
     Route: 058
  39. FRAGMIN [Suspect]
     Active Substance: DALTEPARIN SODIUM
     Dosage: 200 INTERNATIONAL UNIT, ONCE A DAY
     Route: 058
     Dates: start: 2006
  40. HYDROCORTISONE SODIUM SUCCINATE [Suspect]
     Active Substance: HYDROCORTISONE SODIUM SUCCINATE
     Indication: PRODUCT USED FOR UNKNOWN INDICATION
     Dosage: 100 MILLIGRAM, ONCE A DAY
     Route: 042
     Dates: start: 2006
  41. NORADRENALINE [Suspect]
     Active Substance: NOREPINEPHRINE
     Indication: ILL-DEFINED DISORDER
  42. POTASSIUM CHLORIDE. [Suspect]
     Active Substance: POTASSIUM CHLORIDE
     Dosage: UNK UNK, 3 TIMES A DAY
     Route: 065
  43. SODIUM HYDROGEN CARBONATE [Suspect]
     Active Substance: SODIUM BICARBONATE
     Indication: ILL-DEFINED DISORDER
     Dosage: 100 MILLIGRAM, 1 DOSE HOURLY
     Route: 042
     Dates: start: 2006
  44. CO?AMOXICLAV [Concomitant]
     Active Substance: AMOXICILLIN\CLAVULANATE POTASSIUM
     Dosage: 375 MILLIGRAM, 3 TIMES A DAY
     Route: 005
     Dates: start: 20060913
  45. ERYTHROMYCIN. [Concomitant]
     Active Substance: ERYTHROMYCIN
     Indication: ILL-DEFINED DISORDER
     Dosage: 250 MILLIGRAM, ONCE A DAY
  46. PIRITON [Suspect]
     Active Substance: CHLORPHENIRAMINE MALEATE
     Indication: ILL-DEFINED DISORDER
     Dosage: 10 MILLIGRAM, FOUR TIMES/DAY
     Route: 042
     Dates: start: 2006
  47. POTASSIUM PHOSPHATE [Suspect]
     Active Substance: POTASSIUM PHOSPHATE
     Indication: ILL-DEFINED DISORDER
     Dosage: UNK
     Route: 065
     Dates: start: 2006
  48. PROPOFOL. [Suspect]
     Active Substance: PROPOFOL
     Indication: ILL-DEFINED DISORDER
     Dosage: UNK
     Route: 042
  49. PROPOFOL. [Suspect]
     Active Substance: PROPOFOL
     Dosage: UNK
     Route: 005
     Dates: start: 2006
  50. SALBUTAMOL SULFATE [Suspect]
     Active Substance: ALBUTEROL SULFATE
     Indication: ILL-DEFINED DISORDER
     Dosage: UNK UNK,AS NECESSARY,
     Route: 005
     Dates: start: 2006
  51. SODIUM CHLORIDE. [Suspect]
     Active Substance: SODIUM CHLORIDE
     Indication: ILL-DEFINED DISORDER
     Dosage: 0.9 PERCENT, ONCE A DAY
     Route: 042
     Dates: start: 2006
  52. SULFADIAZINE. [Suspect]
     Active Substance: SULFADIAZINE
     Indication: PRODUCT USED FOR UNKNOWN INDICATION
     Dosage: UNK
     Route: 061
  53. ATROVENT [Concomitant]
     Active Substance: IPRATROPIUM BROMIDE
     Indication: ILL-DEFINED DISORDER
     Dosage: UNK UNK,AS NECESSARY (NEBULISER)
     Route: 048
  54. CIPROFLOX [Concomitant]
     Active Substance: CIPROFLOXACIN HYDROCHLORIDE
     Indication: ILL-DEFINED DISORDER
     Dosage: 400 MILLIGRAM, ONCE A DAY
     Route: 042
  55. ALFENTANIL. [Suspect]
     Active Substance: ALFENTANIL
     Indication: ILL-DEFINED DISORDER
     Dosage: UNK
     Route: 042
     Dates: start: 2006
  56. FLAMAZINE [Suspect]
     Active Substance: SILVER SULFADIAZINE
     Indication: ILL-DEFINED DISORDER
  57. FUROSEMID [Suspect]
     Active Substance: FUROSEMIDE
     Indication: ILL-DEFINED DISORDER
     Dosage: 20 MILLIGRAM, ONCE A DAY
     Route: 048
     Dates: start: 2006
  58. FUROSEMID [Suspect]
     Active Substance: FUROSEMIDE
     Dosage: 20 MILLIGRAM, TWO TIMES A DAY (40 MG ONCE A DAY)
     Route: 042
  59. OMEPRAZOLE. [Suspect]
     Active Substance: OMEPRAZOLE
     Indication: ILL-DEFINED DISORDER
     Dosage: 40 MILLIGRAM
     Route: 042
     Dates: start: 2006
  60. SIMVASTIN [Suspect]
     Active Substance: SIMVASTATIN
     Indication: ILL-DEFINED DISORDER
     Dosage: 40 MILLIGRAM, ONCE A DAY
     Route: 042
     Dates: start: 2006
  61. SILVER SULFADIAZENE [Suspect]
     Active Substance: SILVER SULFADIAZINE
     Indication: PRODUCT USED FOR UNKNOWN INDICATION
     Dosage: UNK
     Route: 061
     Dates: start: 2006
  62. CO?AMOXICLAV [Concomitant]
     Active Substance: AMOXICILLIN\CLAVULANATE POTASSIUM
     Indication: PRODUCT USED FOR UNKNOWN INDICATION
     Dosage: 375 MILLIGRAM
     Route: 065
  63. CO?AMOXICLAV [Concomitant]
     Active Substance: AMOXICILLIN\CLAVULANATE POTASSIUM
     Dosage: 1125 MILLIGRAM, ONCE A DAY
     Route: 065
     Dates: start: 20060913
  64. PANTOPRAZOLE [Concomitant]
     Active Substance: PANTOPRAZOLE
     Indication: ILL-DEFINED DISORDER
     Dosage: 40 MILLIGRAM, ONCE A DAY
     Route: 042
  65. ZOPICLONE [Concomitant]
     Active Substance: ZOPICLONE
     Indication: ILL-DEFINED DISORDER
     Dosage: UNK
     Route: 048
  66. AMOXICILLIN. [Suspect]
     Active Substance: AMOXICILLIN
     Indication: ILL-DEFINED DISORDER
     Dosage: 1 GRAM, 3 TIMES A DAY (3 GRAM ONCE A DAY)
     Route: 042
     Dates: start: 20060913
  67. SIMVASTATIN 40 MG FILM COATED TABLETS [Suspect]
     Active Substance: SIMVASTATIN
     Indication: ILL-DEFINED DISORDER
     Dosage: 40 MILLIGRAM, ONCE A DAY
     Route: 042
     Dates: start: 2006
  68. ACTRAPID [Suspect]
     Active Substance: INSULIN HUMAN
     Indication: TOXIC EPIDERMAL NECROLYSIS
     Dosage: 50 UNITS/50ML
     Route: 042
     Dates: start: 2006
  69. CALCIUM CHLORIDE. [Suspect]
     Active Substance: CALCIUM CHLORIDE
     Dosage: UNK
     Route: 065
  70. DOBUTAMINE [Suspect]
     Active Substance: DOBUTAMINE HYDROCHLORIDE
     Indication: ILL-DEFINED DISORDER
     Dosage: UNK
     Route: 065
  71. DOBUTAMINE [Suspect]
     Active Substance: DOBUTAMINE HYDROCHLORIDE
     Dosage: UNK
     Route: 005
     Dates: start: 2006
  72. FUROSEMIDE. [Suspect]
     Active Substance: FUROSEMIDE
     Indication: ILL-DEFINED DISORDER
  73. HEPARIN SODIUM. [Suspect]
     Active Substance: HEPARIN SODIUM
     Indication: PRODUCT USED FOR UNKNOWN INDICATION
     Dosage: 3500 MICROGRAM, ONCE A DAY
     Route: 065
  74. HYDROCORTISONE. [Suspect]
     Active Substance: HYDROCORTISONE
     Indication: ILL-DEFINED DISORDER
     Dosage: 100 MILLIGRAM, ONCE A DAY
     Route: 042
     Dates: start: 2006
  75. LACTULOSE. [Suspect]
     Active Substance: LACTULOSE
     Indication: ILL-DEFINED DISORDER
     Dosage: 10 MILLILITER, ONCE A DAY
     Route: 065
     Dates: start: 2006
  76. LORAZEPAM. [Suspect]
     Active Substance: LORAZEPAM
     Indication: ILL-DEFINED DISORDER
     Dosage: UNK, ONCE A DAY (1?2MG)
     Route: 065
     Dates: start: 2006
  77. MAGNESIUM SULFATE. [Suspect]
     Active Substance: MAGNESIUM SULFATE
     Indication: ILL-DEFINED DISORDER
     Dosage: UNK
     Route: 005
  78. POTASSIUM CHLORIDE. [Suspect]
     Active Substance: POTASSIUM CHLORIDE
     Indication: ILL-DEFINED DISORDER
     Dosage: UNK
     Route: 065
  79. SODIUM BICARBONATE. [Suspect]
     Active Substance: SODIUM BICARBONATE
     Indication: ILL-DEFINED DISORDER
  80. TINZAPARIN SODIUM [Suspect]
     Active Substance: TINZAPARIN SODIUM
     Indication: ILL-DEFINED DISORDER
     Dosage: 3500 MICROGRAM, ONCE A DAY
     Route: 065
     Dates: start: 2006
  81. VITAMIN K [Suspect]
     Active Substance: PHYTONADIONE
     Indication: PRODUCT USED FOR UNKNOWN INDICATION
     Dosage: UNK UNK,UNK,
     Route: 005
     Dates: start: 2006
  82. ZOTON [Suspect]
     Active Substance: LANSOPRAZOLE
     Indication: PRODUCT USED FOR UNKNOWN INDICATION
     Dosage: 30 MILLIGRAM, ONCE A DAY
     Route: 005
     Dates: start: 2006
  83. MIDODRINE [Concomitant]
     Active Substance: MIDODRINE
     Indication: ILL-DEFINED DISORDER
     Dosage: UNK
     Route: 048

REACTIONS (1)
  - Toxic epidermal necrolysis [Unknown]

NARRATIVE: CASE EVENT DATE: 2006
